FAERS Safety Report 22160550 (Version 4)
Quarter: 2023Q2

REPORT INFORMATION
  Report Type: Report from Study
  Country: US (occurrence: US)
  Receive Date: 20230331
  Receipt Date: 20230626
  Transmission Date: 20230721
  Serious: Yes (Hospitalization, Other)
  Sender: FDA-Public Use
  Company Number: US-002147023-NVSC2023US072918

PATIENT
  Sex: Male

DRUGS (3)
  1. ENTRESTO [Suspect]
     Active Substance: SACUBITRIL\VALSARTAN
     Indication: Product used for unknown indication
     Dosage: UNK
     Route: 065
  2. ENTRESTO [Suspect]
     Active Substance: SACUBITRIL\VALSARTAN
     Dosage: 1 DOSAGE FORM, BID (97/103 MG)
     Route: 048
  3. UNSPECIFIED INGREDIENT [Concomitant]
     Active Substance: UNSPECIFIED INGREDIENT
     Indication: Product used for unknown indication
     Dosage: UNK
     Route: 065

REACTIONS (12)
  - Myocardial infarction [Recovered/Resolved]
  - Chronic obstructive pulmonary disease [Not Recovered/Not Resolved]
  - Dyspnoea [Unknown]
  - Heart rate irregular [Unknown]
  - Cataract [Recovering/Resolving]
  - Vitreous floaters [Unknown]
  - Visual impairment [Recovering/Resolving]
  - Coronary artery disease [Unknown]
  - Renal disorder [Unknown]
  - Weight decreased [Unknown]
  - Gingival disorder [Recovered/Resolved]
  - Tooth loss [Unknown]

NARRATIVE: CASE EVENT DATE: 20210101
